FAERS Safety Report 8392157-5 (Version None)
Quarter: 2012Q2

REPORT INFORMATION
  Report Type: 
  Country: None (occurrence: None)
  Receive Date: 20120529
  Receipt Date: 20120523
  Transmission Date: 20120825
  Serious: No
  Sender: FDA-Public Use
  Company Number: US-BAYER-2012-052482

PATIENT
  Age: 85 Year
  Sex: Male
  Weight: 58.05 kg

DRUGS (5)
  1. SYNTHROID [Concomitant]
  2. CIPROFLOXACIN HCL [Suspect]
     Indication: PRODUCT USED FOR UNKNOWN INDICATION
  3. PREDNISONE TAB [Concomitant]
  4. COUMADIN [Concomitant]
  5. LOSARTAN POTASSIUM [Concomitant]

REACTIONS (1)
  - HYPERSENSITIVITY [None]
